FAERS Safety Report 7397921-7 (Version None)
Quarter: 2011Q2

REPORT INFORMATION
  Report Type: 
  Country: None (occurrence: None)
  Receive Date: 20110406
  Receipt Date: 20110328
  Transmission Date: 20111010
  Serious: Yes (Other)
  Sender: FDA-Public Use
  Company Number: FR-ASTRAZENECA-2011SE17828

PATIENT
  Age: 20552 Day
  Sex: Male

DRUGS (4)
  1. ZOMETA [Concomitant]
  2. DOXYCYCLIN [Concomitant]
     Route: 048
  3. IRESSA [Suspect]
     Indication: LUNG ADENOCARCINOMA STAGE IV
     Route: 048
     Dates: start: 20101215, end: 20110207
  4. IRESSA [Suspect]
     Route: 048
     Dates: start: 20110226

REACTIONS (1)
  - CYTOLYTIC HEPATITIS [None]
